FAERS Safety Report 7531784-1 (Version None)
Quarter: 2011Q2

REPORT INFORMATION
  Report Type: 
  Country: None (occurrence: None)
  Receive Date: 20110608
  Receipt Date: 20110526
  Transmission Date: 20111010
  Serious: Yes (Other)
  Sender: FDA-Public Use
  Company Number: RU-ROCHE-780092

PATIENT
  Sex: Female

DRUGS (2)
  1. AVASTIN [Suspect]
     Dosage: FREQUENCY: DAY 1 AND 15
     Route: 042
  2. PACLITAXEL [Suspect]
     Dosage: FREQUENCY: DAYS 1,8 AND 15, DISCONTINUED.
     Route: 042

REACTIONS (3)
  - EPISTAXIS [None]
  - HAEMATOTOXICITY [None]
  - FEBRILE NEUTROPENIA [None]
